FAERS Safety Report 13709723 (Version 1)
Quarter: 2017Q3

REPORT INFORMATION
  Report Type: Spontaneous
  Country: BE (occurrence: BE)
  Receive Date: 20170703
  Receipt Date: 20170703
  Transmission Date: 20171127
  Serious: Yes (Other)
  Sender: FDA-Public Use
  Company Number: BE-SUN PHARMACEUTICAL INDUSTRIES LTD-2016R1-115659

PATIENT
  Age: 54 Year
  Sex: Female
  Weight: 97 kg

DRUGS (6)
  1. METFORMIN [Concomitant]
     Active Substance: METFORMIN HYDROCHLORIDE
     Indication: DIABETIC NEPHROPATHY
  2. PRINDOPRIL [Concomitant]
     Indication: DIABETIC NEPHROPATHY
  3. PRINDOPRIL [Concomitant]
     Indication: TYPE 2 DIABETES MELLITUS
     Dosage: 5 MG, UNK
     Route: 065
  4. SULFASALAZINE. [Suspect]
     Active Substance: SULFASALAZINE
     Indication: PSORIATIC ARTHROPATHY
     Dosage: 6 X 500 MG, DAILY FOR 9 YEARS
     Route: 065
  5. VERAPAMIL [Concomitant]
     Active Substance: VERAPAMIL HYDROCHLORIDE
     Indication: ATRIAL TACHYCARDIA
     Dosage: UNK
     Route: 065
  6. METFORMIN [Concomitant]
     Active Substance: METFORMIN HYDROCHLORIDE
     Indication: TYPE 2 DIABETES MELLITUS
     Dosage: 850 MG, TID
     Route: 065

REACTIONS (6)
  - Hydroureter [Recovering/Resolving]
  - Ureterolithiasis [Recovering/Resolving]
  - Microlithiasis [Recovering/Resolving]
  - Nephrolithiasis [Recovering/Resolving]
  - Hydronephrosis [Recovering/Resolving]
  - Renal impairment [Unknown]
